FAERS Safety Report 23608457 (Version 1)
Quarter: 2024Q1

REPORT INFORMATION
  Report Type: Spontaneous
  Country: BE (occurrence: BE)
  Receive Date: 20240307
  Receipt Date: 20240307
  Transmission Date: 20240410
  Serious: Yes (Other)
  Sender: FDA-Public Use
  Company Number: BE-ABBVIE-22K-013-4529325-00

PATIENT
  Age: 60 Year
  Sex: Male

DRUGS (1)
  1. SKYRIZI [Suspect]
     Active Substance: RISANKIZUMAB-RZAA
     Indication: Product used for unknown indication
     Route: 058
     Dates: start: 2021

REACTIONS (10)
  - Dermatitis exfoliative generalised [Unknown]
  - Skin exfoliation [Unknown]
  - Hypereosinophilic syndrome [Unknown]
  - Pruritus [Unknown]
  - Diabetes mellitus [Unknown]
  - Visual impairment [Unknown]
  - Hypercholesterolaemia [Unknown]
  - Therapeutic product effect decreased [Unknown]
  - Lymphopenia [Unknown]
  - Anaemia [Unknown]
